FAERS Safety Report 24162655 (Version 1)
Quarter: 2024Q3

REPORT INFORMATION
  Report Type: Spontaneous
  Country: US (occurrence: None)
  Receive Date: 20240801
  Receipt Date: 20240801
  Transmission Date: 20241016
  Serious: No
  Sender: ASTRAZENECA
  Company Number: 2024A169395

PATIENT
  Age: 28307 Day
  Sex: Male
  Weight: 83.5 kg

DRUGS (1)
  1. FARXIGA [Suspect]
     Active Substance: DAPAGLIFLOZIN PROPANEDIOL
     Route: 048

REACTIONS (3)
  - Dyspnoea [Unknown]
  - Fatigue [Unknown]
  - Muscle spasms [Unknown]

NARRATIVE: CASE EVENT DATE: 20240609
